FAERS Safety Report 7680151-9 (Version None)
Quarter: 2011Q3

REPORT INFORMATION
  Report Type: 
  Country: None (occurrence: None)
  Receive Date: 20110811
  Receipt Date: 20110811
  Transmission Date: 20111222
  Serious: Yes (Life-Threatening, Disabling, Other)
  Sender: FDA-Public Use
  Company Number: None

PATIENT
  Sex: Female
  Weight: 63.05 kg

DRUGS (1)
  1. RECLAST [Suspect]
     Indication: BONE DENSITY ABNORMAL
     Dosage: 15 MINUTE DRIP ONE TIME
     Dates: start: 20110531

REACTIONS (3)
  - RENAL FAILURE ACUTE [None]
  - MYALGIA [None]
  - BONE PAIN [None]
